FAERS Safety Report 21044331 (Version 1)
Quarter: 2022Q3

REPORT INFORMATION
  Report Type: Spontaneous
  Country: US (occurrence: None)
  Receive Date: 20220703
  Receipt Date: 20220703
  Transmission Date: 20221026
  Serious: Yes (Other)
  Sender: FDA-Public Use
  Company Number: None

PATIENT
  Age: 67 Year
  Sex: Female
  Weight: 69.75 kg

DRUGS (5)
  1. CLOBETASOL PROPIONATE [Suspect]
     Active Substance: CLOBETASOL PROPIONATE
     Indication: Psoriasis
     Dosage: OTHER QUANTITY : 1 APPLY TWICE DAILY;?FREQUENCY : TWICE A DAY;?
     Route: 061
     Dates: start: 20220702, end: 20220703
  2. QVAR [Concomitant]
     Active Substance: BECLOMETHASONE DIPROPIONATE
  3. VITAMIN D [Concomitant]
     Active Substance: VITAMIN D NOS
  4. MAGNESIUM [Concomitant]
     Active Substance: MAGNESIUM
  5. FISH OIL [Concomitant]
     Active Substance: FISH OIL

REACTIONS (5)
  - Application site reaction [None]
  - Skin fissures [None]
  - Pruritus [None]
  - Abdominal pain upper [None]
  - Pollakiuria [None]

NARRATIVE: CASE EVENT DATE: 20220702
